FAERS Safety Report 23773877 (Version 1)
Quarter: 2024Q2

REPORT INFORMATION
  Report Type: Spontaneous
  Country: US (occurrence: US)
  Receive Date: 20240423
  Receipt Date: 20240423
  Transmission Date: 20240716
  Serious: No
  Sender: FDA-Public Use
  Company Number: US-TEVA-VS-3179435

PATIENT
  Age: 55 Year
  Sex: Female

DRUGS (1)
  1. VALIUM [Suspect]
     Active Substance: DIAZEPAM
     Indication: Anxiety
     Dosage: THERAPY DATES: EVERY FOUR MONTHS WHEN I HAVE MY DENTAL CLEANS PROCEDURE
     Route: 065

REACTIONS (2)
  - Drug ineffective [Unknown]
  - Hypertension [Unknown]

NARRATIVE: CASE EVENT DATE: 20240402
